FAERS Safety Report 23571361 (Version 5)
Quarter: 2025Q3

REPORT INFORMATION
  Report Type: Spontaneous
  Country: CA (occurrence: CA)
  Receive Date: 20240227
  Receipt Date: 20250922
  Transmission Date: 20251020
  Serious: Yes (Death, Life-Threatening, Hospitalization, Disabling, Other)
  Sender: ASCEND THERAPEUTICS US, LLC
  Company Number: CA-Ascend Therapeutics US, LLC-2153742

PATIENT
  Age: 44 Year
  Sex: Female
  Weight: 70 kg

DRUGS (302)
  1. ESTROGEL [Suspect]
     Active Substance: ESTRADIOL
     Indication: Product used for unknown indication
  2. ESTRADIOL [Suspect]
     Active Substance: ESTRADIOL
  3. TYLENOL [Concomitant]
     Active Substance: ACETAMINOPHEN
  4. PANTOPRAZOLE SODIUM ANHYDROUS [Concomitant]
     Active Substance: PANTOPRAZOLE SODIUM ANHYDROUS
  5. FISH OIL [Concomitant]
     Active Substance: FISH OIL
  6. PANTOPRAZOLE [Concomitant]
     Active Substance: PANTOPRAZOLE
  7. SULFASALAZINE [Concomitant]
     Active Substance: SULFASALAZINE
  8. LANSOPRAZOLE [Concomitant]
     Active Substance: LANSOPRAZOLE
  9. IBUPROFEN [Concomitant]
     Active Substance: IBUPROFEN
  10. GLUCOSAMINE [Concomitant]
     Active Substance: GLUCOSAMINE
  11. ERGOCALCIFEROL [Concomitant]
     Active Substance: ERGOCALCIFEROL
  12. CODEINE [Concomitant]
     Active Substance: CODEINE
  13. CAFFEINE [Concomitant]
     Active Substance: CAFFEINE
  14. ATIVAN [Concomitant]
     Active Substance: LORAZEPAM
  15. ATASOL [Concomitant]
  16. TYLENOL WITH CODEINE [Concomitant]
     Active Substance: ACETAMINOPHEN\CODEINE PHOSPHATE
  17. VITAMIN C [Concomitant]
     Active Substance: ASCORBIC ACID
  18. XELJANZ [Suspect]
     Active Substance: TOFACITINIB CITRATE
  19. XELJANZ [Suspect]
     Active Substance: TOFACITINIB CITRATE
  20. XELJANZ [Suspect]
     Active Substance: TOFACITINIB CITRATE
  21. XELJANZ [Suspect]
     Active Substance: TOFACITINIB CITRATE
  22. XELJANZ [Suspect]
     Active Substance: TOFACITINIB CITRATE
  23. XELJANZ [Suspect]
     Active Substance: TOFACITINIB CITRATE
  24. XELJANZ [Suspect]
     Active Substance: TOFACITINIB CITRATE
  25. XELJANZ [Suspect]
     Active Substance: TOFACITINIB CITRATE
  26. XELJANZ [Suspect]
     Active Substance: TOFACITINIB CITRATE
  27. XELJANZ [Suspect]
     Active Substance: TOFACITINIB CITRATE
  28. XELJANZ [Suspect]
     Active Substance: TOFACITINIB CITRATE
  29. XELJANZ [Suspect]
     Active Substance: TOFACITINIB CITRATE
  30. XELJANZ [Suspect]
     Active Substance: TOFACITINIB CITRATE
  31. XELJANZ [Suspect]
     Active Substance: TOFACITINIB CITRATE
  32. XELJANZ [Suspect]
     Active Substance: TOFACITINIB CITRATE
  33. XELJANZ [Suspect]
     Active Substance: TOFACITINIB CITRATE
  34. XELJANZ [Suspect]
     Active Substance: TOFACITINIB CITRATE
  35. SULFASALAZINE [Suspect]
     Active Substance: SULFASALAZINE
  36. SULFASALAZINE [Suspect]
     Active Substance: SULFASALAZINE
  37. SULFASALAZINE [Suspect]
     Active Substance: SULFASALAZINE
  38. SULFASALAZINE [Suspect]
     Active Substance: SULFASALAZINE
  39. SULFASALAZINE [Suspect]
     Active Substance: SULFASALAZINE
  40. SULFASALAZINE [Suspect]
     Active Substance: SULFASALAZINE
  41. SULFASALAZINE [Suspect]
     Active Substance: SULFASALAZINE
  42. SULFASALAZINE [Suspect]
     Active Substance: SULFASALAZINE
  43. SULFASALAZINE [Suspect]
     Active Substance: SULFASALAZINE
  44. SULFASALAZINE [Suspect]
     Active Substance: SULFASALAZINE
  45. SULFASALAZINE [Suspect]
     Active Substance: SULFASALAZINE
  46. SULFASALAZINE [Suspect]
     Active Substance: SULFASALAZINE
  47. SULFASALAZINE [Suspect]
     Active Substance: SULFASALAZINE
  48. SULFASALAZINE [Suspect]
     Active Substance: SULFASALAZINE
  49. SULFASALAZINE [Suspect]
     Active Substance: SULFASALAZINE
  50. SULFASALAZINE [Suspect]
     Active Substance: SULFASALAZINE
  51. SULFASALAZINE [Suspect]
     Active Substance: SULFASALAZINE
  52. SULFASALAZINE [Suspect]
     Active Substance: SULFASALAZINE
  53. SULFAMETHOXAZOLE AND TRIMETHOPRIM [Suspect]
     Active Substance: SULFAMETHOXAZOLE\TRIMETHOPRIM
  54. SULFAMETHOXAZOLE [Suspect]
     Active Substance: SULFAMETHOXAZOLE
  55. SULFAMETHOXAZOLE [Suspect]
     Active Substance: SULFAMETHOXAZOLE
  56. STELARA [Suspect]
     Active Substance: USTEKINUMAB
  57. STELARA [Suspect]
     Active Substance: USTEKINUMAB
  58. STELARA [Suspect]
     Active Substance: USTEKINUMAB
  59. STELARA [Suspect]
     Active Substance: USTEKINUMAB
  60. STELARA [Suspect]
     Active Substance: USTEKINUMAB
  61. STELARA [Suspect]
     Active Substance: USTEKINUMAB
  62. SIMPONI [Suspect]
     Active Substance: GOLIMUMAB
  63. SIMPONI [Suspect]
     Active Substance: GOLIMUMAB
  64. SIMPONI [Suspect]
     Active Substance: GOLIMUMAB
  65. SIMPONI [Suspect]
     Active Substance: GOLIMUMAB
  66. SIMPONI [Suspect]
     Active Substance: GOLIMUMAB
  67. SIMPONI [Suspect]
     Active Substance: GOLIMUMAB
  68. SIMPONI [Suspect]
     Active Substance: GOLIMUMAB
  69. RITUXIMAB [Suspect]
     Active Substance: RITUXIMAB
  70. RITUXIMAB [Suspect]
     Active Substance: RITUXIMAB
  71. RITUXIMAB [Suspect]
     Active Substance: RITUXIMAB
  72. RITUXIMAB [Suspect]
     Active Substance: RITUXIMAB
  73. RITUXIMAB [Suspect]
     Active Substance: RITUXIMAB
  74. RITUXIMAB [Suspect]
     Active Substance: RITUXIMAB
  75. REMICADE [Suspect]
     Active Substance: INFLIXIMAB
  76. REMICADE [Suspect]
     Active Substance: INFLIXIMAB
  77. REMICADE [Suspect]
     Active Substance: INFLIXIMAB
  78. REMICADE [Suspect]
     Active Substance: INFLIXIMAB
  79. CETIRIZINE HYDROCHLORIDE\PSEUDOEPHEDRINE HYDROCHLORIDE [Suspect]
     Active Substance: CETIRIZINE HYDROCHLORIDE\PSEUDOEPHEDRINE HYDROCHLORIDE
  80. CETIRIZINE HYDROCHLORIDE\PSEUDOEPHEDRINE HYDROCHLORIDE [Suspect]
     Active Substance: CETIRIZINE HYDROCHLORIDE\PSEUDOEPHEDRINE HYDROCHLORIDE
  81. CETIRIZINE HYDROCHLORIDE\PSEUDOEPHEDRINE HYDROCHLORIDE [Suspect]
     Active Substance: CETIRIZINE HYDROCHLORIDE\PSEUDOEPHEDRINE HYDROCHLORIDE
  82. PSEUDOEPHEDRINE HYDROCHLORIDE [Suspect]
     Active Substance: PSEUDOEPHEDRINE HYDROCHLORIDE
  83. PSEUDOEPHEDRINE HYDROCHLORIDE [Suspect]
     Active Substance: PSEUDOEPHEDRINE HYDROCHLORIDE
  84. PSEUDOEPHEDRINE HYDROCHLORIDE [Suspect]
     Active Substance: PSEUDOEPHEDRINE HYDROCHLORIDE
  85. PSEUDOEPHEDRINE HYDROCHLORIDE [Suspect]
     Active Substance: PSEUDOEPHEDRINE HYDROCHLORIDE
  86. PHTHALYLSULFATHIAZOLE [Suspect]
     Active Substance: PHTHALYLSULFATHIAZOLE
  87. PHTHALYLSULFATHIAZOLE [Suspect]
     Active Substance: PHTHALYLSULFATHIAZOLE
  88. PHTHALYLSULFATHIAZOLE [Suspect]
     Active Substance: PHTHALYLSULFATHIAZOLE
  89. OXYCODONE TEREPHTHALATE [Suspect]
     Active Substance: OXYCODONE TEREPHTHALATE
  90. OXYCODONE HYDROCHLORIDE [Suspect]
     Active Substance: OXYCODONE HYDROCHLORIDE
  91. OXYCODONE [Suspect]
     Active Substance: OXYCODONE
  92. OXYCODONE [Suspect]
     Active Substance: OXYCODONE
  93. ORENCIA [Suspect]
     Active Substance: ABATACEPT
  94. ORENCIA [Suspect]
     Active Substance: ABATACEPT
  95. ORENCIA [Suspect]
     Active Substance: ABATACEPT
  96. ORENCIA [Suspect]
     Active Substance: ABATACEPT
  97. ORENCIA [Suspect]
     Active Substance: ABATACEPT
  98. ORENCIA [Suspect]
     Active Substance: ABATACEPT
  99. ORENCIA [Suspect]
     Active Substance: ABATACEPT
  100. ORENCIA [Suspect]
     Active Substance: ABATACEPT
  101. ORENCIA [Suspect]
     Active Substance: ABATACEPT
  102. ORENCIA [Suspect]
     Active Substance: ABATACEPT
  103. ORENCIA [Suspect]
     Active Substance: ABATACEPT
  104. ORENCIA [Suspect]
     Active Substance: ABATACEPT
  105. METHOTREXATE [Suspect]
     Active Substance: METHOTREXATE
  106. METHOTREXATE [Suspect]
     Active Substance: METHOTREXATE
  107. METHOTREXATE [Suspect]
     Active Substance: METHOTREXATE
  108. METHOTREXATE [Suspect]
     Active Substance: METHOTREXATE
  109. METHOTREXATE [Suspect]
     Active Substance: METHOTREXATE
  110. METHOTREXATE [Suspect]
     Active Substance: METHOTREXATE
  111. METHOTREXATE [Suspect]
     Active Substance: METHOTREXATE
  112. METHOTREXATE [Suspect]
     Active Substance: METHOTREXATE
  113. METHOTREXATE [Suspect]
     Active Substance: METHOTREXATE
  114. METHOTREXATE [Suspect]
     Active Substance: METHOTREXATE
  115. METHOTREXATE [Suspect]
     Active Substance: METHOTREXATE
  116. METHOTREXATE [Suspect]
     Active Substance: METHOTREXATE
  117. METHOTREXATE [Suspect]
     Active Substance: METHOTREXATE
  118. METHOTREXATE [Suspect]
     Active Substance: METHOTREXATE
  119. METHOTREXATE [Suspect]
     Active Substance: METHOTREXATE
  120. METHOTREXATE [Suspect]
     Active Substance: METHOTREXATE
  121. METHOTREXATE [Suspect]
     Active Substance: METHOTREXATE
  122. METHOTREXATE [Suspect]
     Active Substance: METHOTREXATE
  123. METHOTREXATE [Suspect]
     Active Substance: METHOTREXATE
  124. METHOTREXATE [Suspect]
     Active Substance: METHOTREXATE
  125. METHOTREXATE [Suspect]
     Active Substance: METHOTREXATE
  126. LEFLUNOMIDE [Suspect]
     Active Substance: LEFLUNOMIDE
  127. LEFLUNOMIDE [Suspect]
     Active Substance: LEFLUNOMIDE
  128. LEFLUNOMIDE [Suspect]
     Active Substance: LEFLUNOMIDE
  129. LEFLUNOMIDE [Suspect]
     Active Substance: LEFLUNOMIDE
  130. LEFLUNOMIDE [Suspect]
     Active Substance: LEFLUNOMIDE
  131. LEFLUNOMIDE [Suspect]
     Active Substance: LEFLUNOMIDE
  132. HYDROXYCHLOROQUINE SULFATE [Suspect]
     Active Substance: HYDROXYCHLOROQUINE SULFATE
  133. HYDROXYCHLOROQUINE SULFATE [Suspect]
     Active Substance: HYDROXYCHLOROQUINE SULFATE
  134. HYDROXYCHLOROQUINE SULFATE [Suspect]
     Active Substance: HYDROXYCHLOROQUINE SULFATE
  135. HYDROXYCHLOROQUINE SULFATE [Suspect]
     Active Substance: HYDROXYCHLOROQUINE SULFATE
  136. HYDROXYCHLOROQUINE SULFATE [Suspect]
     Active Substance: HYDROXYCHLOROQUINE SULFATE
  137. HYDROXYCHLOROQUINE SULFATE [Suspect]
     Active Substance: HYDROXYCHLOROQUINE SULFATE
  138. HYDROXYCHLOROQUINE SULFATE [Suspect]
     Active Substance: HYDROXYCHLOROQUINE SULFATE
  139. HYDROXYCHLOROQUINE SULFATE [Suspect]
     Active Substance: HYDROXYCHLOROQUINE SULFATE
  140. HYDROXYCHLOROQUINE SULFATE [Suspect]
     Active Substance: HYDROXYCHLOROQUINE SULFATE
  141. HYDROXYCHLOROQUINE SULFATE [Suspect]
     Active Substance: HYDROXYCHLOROQUINE SULFATE
  142. HYDROXYCHLOROQUINE SULFATE [Suspect]
     Active Substance: HYDROXYCHLOROQUINE SULFATE
  143. HYDROXYCHLOROQUINE SULFATE [Suspect]
     Active Substance: HYDROXYCHLOROQUINE SULFATE
  144. HYDROXYCHLOROQUINE SULFATE [Suspect]
     Active Substance: HYDROXYCHLOROQUINE SULFATE
  145. HYDROXYCHLOROQUINE SULFATE [Suspect]
     Active Substance: HYDROXYCHLOROQUINE SULFATE
  146. HYDROXYCHLOROQUINE SULFATE [Suspect]
     Active Substance: HYDROXYCHLOROQUINE SULFATE
  147. HYDROXYCHLOROQUINE SULFATE [Suspect]
     Active Substance: HYDROXYCHLOROQUINE SULFATE
  148. HYDROXYCHLOROQUINE SULFATE [Suspect]
     Active Substance: HYDROXYCHLOROQUINE SULFATE
  149. HYDROXYCHLOROQUINE SULFATE [Suspect]
     Active Substance: HYDROXYCHLOROQUINE SULFATE
  150. HYDROXYCHLOROQUINE [Suspect]
     Active Substance: HYDROXYCHLOROQUINE
  151. HYDROXYCHLOROQUINE [Suspect]
     Active Substance: HYDROXYCHLOROQUINE
  152. HYDROXYCHLOROQUINE [Suspect]
     Active Substance: HYDROXYCHLOROQUINE
  153. HYDROXYCHLOROQUINE [Suspect]
     Active Substance: HYDROXYCHLOROQUINE
  154. HYDROXYCHLOROQUINE [Suspect]
     Active Substance: HYDROXYCHLOROQUINE
  155. HUMIRA [Suspect]
     Active Substance: ADALIMUMAB
  156. HUMIRA [Suspect]
     Active Substance: ADALIMUMAB
  157. HUMIRA [Suspect]
     Active Substance: ADALIMUMAB
  158. HUMIRA [Suspect]
     Active Substance: ADALIMUMAB
  159. HUMIRA [Suspect]
     Active Substance: ADALIMUMAB
  160. HUMIRA [Suspect]
     Active Substance: ADALIMUMAB
  161. HUMIRA [Suspect]
     Active Substance: ADALIMUMAB
  162. FOLIC ACID [Suspect]
     Active Substance: FOLIC ACID
  163. FOLIC ACID [Suspect]
     Active Substance: FOLIC ACID
  164. FOLIC ACID [Suspect]
     Active Substance: FOLIC ACID
  165. FOLIC ACID [Suspect]
     Active Substance: FOLIC ACID
  166. FOLIC ACID [Suspect]
     Active Substance: FOLIC ACID
  167. FOLIC ACID [Suspect]
     Active Substance: FOLIC ACID
  168. FOLIC ACID [Suspect]
     Active Substance: FOLIC ACID
  169. FOLIC ACID [Suspect]
     Active Substance: FOLIC ACID
  170. FOLIC ACID [Suspect]
     Active Substance: FOLIC ACID
  171. FOLIC ACID [Suspect]
     Active Substance: FOLIC ACID
  172. FOLIC ACID [Suspect]
     Active Substance: FOLIC ACID
  173. ENBREL [Suspect]
     Active Substance: ETANERCEPT
  174. ENBREL [Suspect]
     Active Substance: ETANERCEPT
  175. ENBREL [Suspect]
     Active Substance: ETANERCEPT
  176. ENBREL [Suspect]
     Active Substance: ETANERCEPT
  177. ENBREL [Suspect]
     Active Substance: ETANERCEPT
  178. ENBREL [Suspect]
     Active Substance: ETANERCEPT
  179. ENBREL [Suspect]
     Active Substance: ETANERCEPT
  180. ENBREL [Suspect]
     Active Substance: ETANERCEPT
  181. ENBREL [Suspect]
     Active Substance: ETANERCEPT
  182. DICLOFENAC SODIUM [Suspect]
     Active Substance: DICLOFENAC SODIUM
  183. DICLOFENAC SODIUM [Suspect]
     Active Substance: DICLOFENAC SODIUM
  184. DICLOFENAC SODIUM [Suspect]
     Active Substance: DICLOFENAC SODIUM
  185. DICLOFENAC [Suspect]
     Active Substance: DICLOFENAC
  186. DICLOFENAC [Suspect]
     Active Substance: DICLOFENAC
  187. DESOXIMETASONE [Suspect]
     Active Substance: DESOXIMETASONE
  188. DESOXIMETASONE [Suspect]
     Active Substance: DESOXIMETASONE
  189. DESOXIMETASONE [Suspect]
     Active Substance: DESOXIMETASONE
  190. DESOXIMETASONE [Suspect]
     Active Substance: DESOXIMETASONE
  191. DESOXIMETASONE [Suspect]
     Active Substance: DESOXIMETASONE
  192. DESOXIMETASONE [Suspect]
     Active Substance: DESOXIMETASONE
  193. DESOXIMETASONE [Suspect]
     Active Substance: DESOXIMETASONE
  194. DESOXIMETASONE [Suspect]
     Active Substance: DESOXIMETASONE
  195. DESOXIMETASONE [Suspect]
     Active Substance: DESOXIMETASONE
  196. DESOXIMETASONE [Suspect]
     Active Substance: DESOXIMETASONE
  197. CORTISONE ACETATE [Suspect]
     Active Substance: CORTISONE ACETATE
  198. CORTISONE ACETATE [Suspect]
     Active Substance: CORTISONE ACETATE
  199. CORTISONE ACETATE [Suspect]
     Active Substance: CORTISONE ACETATE
  200. CORTISONE ACETATE [Suspect]
     Active Substance: CORTISONE ACETATE
  201. CORTISONE ACETATE [Suspect]
     Active Substance: CORTISONE ACETATE
  202. CORTISONE ACETATE [Suspect]
     Active Substance: CORTISONE ACETATE
  203. CORTISONE ACETATE [Suspect]
     Active Substance: CORTISONE ACETATE
  204. CORTISONE ACETATE [Suspect]
     Active Substance: CORTISONE ACETATE
  205. CORTISONE ACETATE [Suspect]
     Active Substance: CORTISONE ACETATE
  206. CORTISONE ACETATE [Suspect]
     Active Substance: CORTISONE ACETATE
  207. CORTISONE ACETATE [Suspect]
     Active Substance: CORTISONE ACETATE
  208. CORTISONE [Suspect]
     Active Substance: CORTISONE
  209. CORTISONE [Suspect]
     Active Substance: CORTISONE
  210. CORTISONE [Suspect]
     Active Substance: CORTISONE
  211. CORTISONE [Suspect]
     Active Substance: CORTISONE
  212. CORTISONE [Suspect]
     Active Substance: CORTISONE
  213. CORTISONE [Suspect]
     Active Substance: CORTISONE
  214. CORTISONE [Suspect]
     Active Substance: CORTISONE
  215. CORTISONE [Suspect]
     Active Substance: CORTISONE
  216. CHLORHEXIDINE [Suspect]
     Active Substance: CHLORHEXIDINE
  217. CHLORHEXIDINE [Suspect]
     Active Substance: CHLORHEXIDINE
  218. CHLORHEXIDINE [Suspect]
     Active Substance: CHLORHEXIDINE
  219. CHLORHEXIDINE [Suspect]
     Active Substance: CHLORHEXIDINE
  220. CHLORHEXIDINE [Suspect]
     Active Substance: CHLORHEXIDINE
  221. CHLORHEXIDINE [Suspect]
     Active Substance: CHLORHEXIDINE
  222. CETIRIZINE HYDROCHLORIDE [Suspect]
     Active Substance: CETIRIZINE HYDROCHLORIDE
  223. CETIRIZINE HYDROCHLORIDE [Suspect]
     Active Substance: CETIRIZINE HYDROCHLORIDE
  224. CETIRIZINE HYDROCHLORIDE [Suspect]
     Active Substance: CETIRIZINE HYDROCHLORIDE
  225. CETIRIZINE HYDROCHLORIDE [Suspect]
     Active Substance: CETIRIZINE HYDROCHLORIDE
  226. CETIRIZINE HYDROCHLORIDE [Suspect]
     Active Substance: CETIRIZINE HYDROCHLORIDE
  227. CETIRIZINE HYDROCHLORIDE [Suspect]
     Active Substance: CETIRIZINE HYDROCHLORIDE
  228. CETIRIZINE HYDROCHLORIDE [Suspect]
     Active Substance: CETIRIZINE HYDROCHLORIDE
  229. CETIRIZINE HYDROCHLORIDE [Suspect]
     Active Substance: CETIRIZINE HYDROCHLORIDE
  230. CETIRIZINE HYDROCHLORIDE [Suspect]
     Active Substance: CETIRIZINE HYDROCHLORIDE
  231. CETIRIZINE HYDROCHLORIDE [Suspect]
     Active Substance: CETIRIZINE HYDROCHLORIDE
  232. CETIRIZINE HYDROCHLORIDE [Suspect]
     Active Substance: CETIRIZINE HYDROCHLORIDE
  233. CETIRIZINE HYDROCHLORIDE [Suspect]
     Active Substance: CETIRIZINE HYDROCHLORIDE
  234. ARAVA [Suspect]
     Active Substance: LEFLUNOMIDE
  235. ARAVA [Suspect]
     Active Substance: LEFLUNOMIDE
  236. ARAVA [Suspect]
     Active Substance: LEFLUNOMIDE
  237. ARAVA [Suspect]
     Active Substance: LEFLUNOMIDE
  238. ARAVA [Suspect]
     Active Substance: LEFLUNOMIDE
  239. ARAVA [Suspect]
     Active Substance: LEFLUNOMIDE
  240. ARAVA [Suspect]
     Active Substance: LEFLUNOMIDE
  241. PREDNISONE [Suspect]
     Active Substance: PREDNISONE
  242. PREDNISONE [Suspect]
     Active Substance: PREDNISONE
  243. PREDNISONE [Suspect]
     Active Substance: PREDNISONE
  244. PREDNISONE [Suspect]
     Active Substance: PREDNISONE
  245. PREDNISONE [Suspect]
     Active Substance: PREDNISONE
  246. PREDNISONE [Suspect]
     Active Substance: PREDNISONE
  247. PREDNISONE [Suspect]
     Active Substance: PREDNISONE
  248. ACTEMRA [Suspect]
     Active Substance: TOCILIZUMAB
  249. ACTEMRA [Suspect]
     Active Substance: TOCILIZUMAB
  250. ACTEMRA [Suspect]
     Active Substance: TOCILIZUMAB
  251. ACTEMRA [Suspect]
     Active Substance: TOCILIZUMAB
  252. ACTEMRA [Suspect]
     Active Substance: TOCILIZUMAB
  253. ACTEMRA [Suspect]
     Active Substance: TOCILIZUMAB
  254. ACTEMRA [Suspect]
     Active Substance: TOCILIZUMAB
  255. ACTEMRA [Suspect]
     Active Substance: TOCILIZUMAB
  256. ACTEMRA [Suspect]
     Active Substance: TOCILIZUMAB
  257. ACTEMRA [Suspect]
     Active Substance: TOCILIZUMAB
  258. ACTEMRA [Suspect]
     Active Substance: TOCILIZUMAB
  259. ACTEMRA [Suspect]
     Active Substance: TOCILIZUMAB
  260. ACTEMRA [Suspect]
     Active Substance: TOCILIZUMAB
  261. ACTEMRA [Suspect]
     Active Substance: TOCILIZUMAB
  262. ACTEMRA [Suspect]
     Active Substance: TOCILIZUMAB
  263. ACTEMRA [Suspect]
     Active Substance: TOCILIZUMAB
  264. ACTEMRA [Suspect]
     Active Substance: TOCILIZUMAB
  265. ACTEMRA [Suspect]
     Active Substance: TOCILIZUMAB
  266. ACTEMRA [Suspect]
     Active Substance: TOCILIZUMAB
  267. ACTEMRA [Suspect]
     Active Substance: TOCILIZUMAB
  268. ACTEMRA [Suspect]
     Active Substance: TOCILIZUMAB
  269. ACETAMINOPHEN\OXYCODONE HYDROCHLORIDE [Suspect]
     Active Substance: ACETAMINOPHEN\OXYCODONE HYDROCHLORIDE
  270. ACETAMINOPHEN [Suspect]
     Active Substance: ACETAMINOPHEN
  271. ACETAMINOPHEN [Suspect]
     Active Substance: ACETAMINOPHEN
  272. ACETAMINOPHEN [Suspect]
     Active Substance: ACETAMINOPHEN
  273. PREDNISONE [Suspect]
     Active Substance: PREDNISONE
  274. PREDNISONE [Suspect]
     Active Substance: PREDNISONE
  275. PREDNISONE [Suspect]
     Active Substance: PREDNISONE
  276. PREDNISONE [Suspect]
     Active Substance: PREDNISONE
  277. PREDNISONE [Suspect]
     Active Substance: PREDNISONE
  278. PREDNISONE [Suspect]
     Active Substance: PREDNISONE
  279. PREDNISONE [Suspect]
     Active Substance: PREDNISONE
  280. PREDNISONE [Suspect]
     Active Substance: PREDNISONE
  281. PREDNISONE [Suspect]
     Active Substance: PREDNISONE
  282. PREDNISONE [Suspect]
     Active Substance: PREDNISONE
  283. PREDNISONE [Suspect]
     Active Substance: PREDNISONE
  284. PREDNISONE [Suspect]
     Active Substance: PREDNISONE
  285. PREDNISONE [Suspect]
     Active Substance: PREDNISONE
  286. PREDNISONE [Suspect]
     Active Substance: PREDNISONE
  287. PREDNISONE [Suspect]
     Active Substance: PREDNISONE
  288. PREDNISONE [Suspect]
     Active Substance: PREDNISONE
  289. PREDNISONE [Suspect]
     Active Substance: PREDNISONE
  290. PREDNISONE [Suspect]
     Active Substance: PREDNISONE
  291. ALENDRONATE SODIUM [Suspect]
     Active Substance: ALENDRONATE SODIUM
  292. FOSAMAX [Suspect]
     Active Substance: ALENDRONATE SODIUM
  293. FOSAMAX [Suspect]
     Active Substance: ALENDRONATE SODIUM
  294. FOSAMAX [Suspect]
     Active Substance: ALENDRONATE SODIUM
  295. FOSAMAX [Suspect]
     Active Substance: ALENDRONATE SODIUM
  296. FOSAMAX [Suspect]
     Active Substance: ALENDRONATE SODIUM
  297. FOSAMAX [Suspect]
     Active Substance: ALENDRONATE SODIUM
  298. FOSAMAX [Suspect]
     Active Substance: ALENDRONATE SODIUM
  299. FOSAMAX [Suspect]
     Active Substance: ALENDRONATE SODIUM
  300. FOSAMAX [Suspect]
     Active Substance: ALENDRONATE SODIUM
  301. FOSAMAX [Suspect]
     Active Substance: ALENDRONATE SODIUM
  302. FOSAMAX [Suspect]
     Active Substance: ALENDRONATE SODIUM

REACTIONS (14)
  - Asthma [Fatal]
  - Off label use [Fatal]
  - Therapy non-responder [Fatal]
  - Treatment failure [Fatal]
  - Drug hypersensitivity [Fatal]
  - Urticaria [Fatal]
  - Road traffic accident [Fatal]
  - Lower limb fracture [Fatal]
  - Gait inability [Fatal]
  - Deep vein thrombosis postoperative [Fatal]
  - Contusion [Fatal]
  - Condition aggravated [Fatal]
  - Chest pain [Fatal]
  - Autoimmune disorder [Fatal]
